FAERS Safety Report 8575540-4 (Version None)
Quarter: 2012Q3

REPORT INFORMATION
  Report Type: 
  Country: None (occurrence: None)
  Receive Date: 20120807
  Receipt Date: 20120802
  Transmission Date: 20120928
  Serious: Yes (Death)
  Sender: FDA-Public Use
  Company Number: PHHO2012CA010876

PATIENT
  Sex: Female

DRUGS (10)
  1. VITAMIN A [Concomitant]
  2. VITAMIN D [Concomitant]
  3. CETIRIZINE HCL [Concomitant]
  4. TRIAZOLAM [Concomitant]
  5. LETROZOLE [Suspect]
     Indication: BREAST CANCER
     Dosage: 2.5 MG, QD
     Dates: start: 20081105
  6. MULTI-VITAMIN [Concomitant]
  7. GABAPENTIN [Concomitant]
  8. ZOCOR [Concomitant]
  9. LORAZEPAM [Concomitant]
  10. CALCIUM [Concomitant]

REACTIONS (10)
  - RESPIRATORY FAILURE [None]
  - HYPERGLYCAEMIA [None]
  - ELECTROLYTE IMBALANCE [None]
  - KNEE ARTHROPLASTY [None]
  - POST PROCEDURAL COMPLICATION [None]
  - HYPOXIC-ISCHAEMIC ENCEPHALOPATHY [None]
  - CARDIAC ARREST [None]
  - HEPATIC FAILURE [None]
  - ISCHAEMIC HEPATITIS [None]
  - UNRESPONSIVE TO STIMULI [None]
